FAERS Safety Report 23153161 (Version 1)
Quarter: 2023Q4

REPORT INFORMATION
  Report Type: Spontaneous
  Country: US (occurrence: None)
  Receive Date: 20231106
  Receipt Date: 20231106
  Transmission Date: 20240110
  Serious: Yes (Hospitalization)
  Sender: FDA-Public Use
  Company Number: None

PATIENT
  Age: 54 Day
  Sex: Female
  Weight: 2.36 kg

DRUGS (3)
  1. NIRSEVIMAB [Suspect]
     Active Substance: NIRSEVIMAB
     Indication: Antiviral prophylaxis
     Dosage: FREQUENCY : ONCE;?
     Route: 030
     Dates: start: 20231102, end: 20231102
  2. IRON\VITAMINS [Concomitant]
     Active Substance: IRON\VITAMINS
     Dates: start: 20230925
  3. human milk fortifier [Concomitant]
     Dates: start: 20230925

REACTIONS (2)
  - Poor feeding infant [None]
  - Enteral nutrition [None]

NARRATIVE: CASE EVENT DATE: 20231103
